FAERS Safety Report 7483606-5 (Version None)
Quarter: 2011Q2

REPORT INFORMATION
  Report Type: 
  Country: None (occurrence: None)
  Receive Date: 20110517
  Receipt Date: 20110513
  Transmission Date: 20111010
  Serious: No
  Sender: FDA-Public Use
  Company Number: US-PFIZER INC-2011076365

PATIENT
  Sex: Female
  Weight: 91 kg

DRUGS (5)
  1. PRISTIQ [Suspect]
     Dosage: 100MG DAILY
     Route: 048
  2. PRISTIQ [Suspect]
     Indication: DEPRESSION
     Dosage: 50MG DAILY
     Route: 048
     Dates: start: 20100101
  3. SEROQUEL [Concomitant]
     Indication: NIGHTMARE
     Dosage: 600 MG, 1X/DAY
     Route: 048
  4. XANAX [Concomitant]
     Indication: PANIC ATTACK
     Dosage: 1MG, 5 TIMES A DAY
     Route: 048
  5. TRAZODONE [Concomitant]
     Indication: SLEEP DISORDER
     Dosage: 500 MG, 1X/DAY
     Route: 048

REACTIONS (1)
  - DRUG SCREEN FALSE POSITIVE [None]
